FAERS Safety Report 12355516 (Version 1)
Quarter: 2016Q2

REPORT INFORMATION
  Report Type: Spontaneous
  Country: US (occurrence: None)
  Receive Date: 20160510
  Receipt Date: 20160510
  Transmission Date: 20160815
  Serious: No
  Sender: FDA-Public Use
  Company Number: None

PATIENT
  Sex: Female

DRUGS (1)
  1. AFINITOR [Suspect]
     Active Substance: EVEROLIMUS
     Indication: BREAST CANCER
     Route: 048
     Dates: start: 20160425

REACTIONS (7)
  - Therapy cessation [None]
  - Oropharyngeal pain [None]
  - Pain [None]
  - Viral upper respiratory tract infection [None]
  - Headache [None]
  - Fatigue [None]
  - Insomnia [None]
